FAERS Safety Report 9934914 (Version 1)
Quarter: 2014Q1

REPORT INFORMATION
  Report Type: Spontaneous
  Country: US (occurrence: US)
  Receive Date: 20140228
  Receipt Date: 20140228
  Transmission Date: 20141002
  Serious: No
  Sender: FDA-Public Use
  Company Number: US-ASTRAZENECA-2013SE81140

PATIENT
  Age: 68 Year
  Sex: Female

DRUGS (2)
  1. TOPROL XL [Suspect]
     Indication: BLOOD PRESSURE ABNORMAL
     Dosage: 50 MG BID, GENERIC
     Route: 048
     Dates: start: 2013
  2. TOPROL XL [Suspect]
     Indication: BLOOD PRESSURE ABNORMAL
     Route: 048

REACTIONS (3)
  - Blood pressure inadequately controlled [Unknown]
  - Drug ineffective [Unknown]
  - Off label use [Unknown]
